FAERS Safety Report 19489006 (Version 3)
Quarter: 2021Q4

REPORT INFORMATION
  Report Type: Report from Study
  Country: IT (occurrence: IT)
  Receive Date: 20210703
  Receipt Date: 20211102
  Transmission Date: 20220303
  Serious: Yes (Other)
  Sender: FDA-Public Use
  Company Number: IT-AXELLIA-003818

PATIENT
  Age: 75 Year
  Sex: Female

DRUGS (6)
  1. FOSFOMYCIN [Suspect]
     Active Substance: FOSFOMYCIN
     Indication: Bacterial infection
     Dosage: UNK
     Route: 065
  2. FOSFOMYCIN [Suspect]
     Active Substance: FOSFOMYCIN
     Indication: Acinetobacter sepsis
     Dosage: UNK
     Route: 042
  3. MEROPENEM [Suspect]
     Active Substance: MEROPENEM
     Indication: Bacterial infection
     Dosage: UNK
     Route: 065
  4. MEROPENEM [Suspect]
     Active Substance: MEROPENEM
     Indication: Acinetobacter sepsis
  5. COLISTIMETHATE SODIUM [Suspect]
     Active Substance: COLISTIMETHATE SODIUM
     Indication: Bacterial infection
     Dosage: UNK
     Route: 042
  6. COLISTIMETHATE SODIUM [Suspect]
     Active Substance: COLISTIMETHATE SODIUM
     Indication: Acinetobacter sepsis

REACTIONS (4)
  - Renal failure [Unknown]
  - Treatment failure [Unknown]
  - Toxicity to various agents [Unknown]
  - Product use in unapproved indication [Unknown]
